FAERS Safety Report 9230801 (Version 1)
Quarter: 2013Q2

REPORT INFORMATION
  Report Type: Spontaneous
  Country: US (occurrence: US)
  Receive Date: 20130415
  Receipt Date: 20130415
  Transmission Date: 20140414
  Serious: Yes (Other)
  Sender: FDA-Public Use
  Company Number: US-ROCHE-1208602

PATIENT
  Age: 47 Year
  Sex: Female
  Weight: 124.4 kg

DRUGS (1)
  1. XOLAIR [Suspect]
     Indication: ASTHMA
     Route: 058
     Dates: start: 20130131

REACTIONS (2)
  - Abdominal distension [Recovered/Resolved]
  - Arthralgia [Recovered/Resolved]
